FAERS Safety Report 8182074-8 (Version None)
Quarter: 2012Q1

REPORT INFORMATION
  Report Type: 
  Country: None (occurrence: None)
  Receive Date: 20120302
  Receipt Date: 20120227
  Transmission Date: 20120608
  Serious: Yes (Death, Life-Threatening, Disabling)
  Sender: FDA-Public Use
  Company Number: US-MERCK-1202USA04132

PATIENT
  Age: 55 Year
  Sex: Male

DRUGS (2)
  1. JANUVIA [Suspect]
     Indication: DIABETES MELLITUS
     Route: 048
  2. VICTOZA [Suspect]
     Route: 065

REACTIONS (2)
  - PANCREATIC CARCINOMA [None]
  - DEATH [None]
